FAERS Safety Report 18241141 (Version 1)
Quarter: 2020Q3

REPORT INFORMATION
  Report Type: Spontaneous
  Country: US (occurrence: US)
  Receive Date: 20200904
  Receipt Date: 20200904
  Transmission Date: 20201103
  Serious: Yes (Death)
  Sender: FDA-Public Use
  Company Number: None

PATIENT
  Age: 44 Year
  Sex: Male
  Weight: 123.1 kg

DRUGS (1)
  1. NIVOLUMAB 240MG [Suspect]
     Active Substance: NIVOLUMAB
     Indication: ANAPLASTIC OLIGODENDROGLIOMA
     Dosage: ?          OTHER ROUTE:IV?
     Route: 042
     Dates: start: 20161109, end: 20161207

REACTIONS (5)
  - Altered state of consciousness [None]
  - Seizure [None]
  - Disease progression [None]
  - Depression [None]
  - Psychotic disorder [None]

NARRATIVE: CASE EVENT DATE: 20161231
